FAERS Safety Report 8958187 (Version 2)
Quarter: 2012Q4

REPORT INFORMATION
  Report Type: 
  Country: US (occurrence: US)
  Receive Date: 20121211
  Receipt Date: 20121217
  Transmission Date: 20130627
  Serious: Yes (Other)
  Sender: FDA-Public Use
  Company Number: PHEH2012US024279

PATIENT
  Age: 35 Year
  Sex: Female
  Weight: 61.22 kg

DRUGS (3)
  1. GILENYA [Suspect]
     Indication: MULTIPLE SCLEROSIS
     Dosage: 0.5 mg, QD
     Route: 048
     Dates: start: 20120827, end: 20121130
  2. FLUOXETINE [Concomitant]
     Route: 048
  3. METROGEL [Concomitant]
     Route: 048

REACTIONS (3)
  - Maculopathy [Not Recovered/Not Resolved]
  - Macular fibrosis [Unknown]
  - Macular oedema [Not Recovered/Not Resolved]
